FAERS Safety Report 7345424-8 (Version None)
Quarter: 2011Q1

REPORT INFORMATION
  Report Type: 
  Country: None (occurrence: None)
  Receive Date: 20110310
  Receipt Date: 20110301
  Transmission Date: 20110831
  Serious: Yes (Other)
  Sender: FDA-Public Use
  Company Number: US-SANOFI-AVENTIS-2011SA012880

PATIENT
  Age: 48 Year
  Sex: Female
  Weight: 54 kg

DRUGS (9)
  1. GLIPIZIDE [Concomitant]
  2. LASIX [Concomitant]
  3. CRESTOR [Concomitant]
  4. GLYCERYL TRINITRATE/ISOSORBIDE DINITRATE [Concomitant]
  5. PLAVIX [Suspect]
     Route: 065
     Dates: start: 20080101
  6. METOPROLOL [Concomitant]
  7. ASPIRIN [Concomitant]
  8. METFORMIN [Concomitant]
  9. NITROGLYCERIN [Concomitant]

REACTIONS (2)
  - CARDIAC DISORDER [None]
  - WEIGHT DECREASED [None]
